FAERS Safety Report 14318105 (Version 1)
Quarter: 2017Q4

REPORT INFORMATION
  Report Type: Spontaneous
  Country: US (occurrence: US)
  Receive Date: 20171221
  Receipt Date: 20171221
  Transmission Date: 20180321
  Serious: Yes (Other)
  Sender: FDA-Public Use
  Company Number: None

PATIENT
  Sex: Female

DRUGS (8)
  1. CAPECITABINE 500MG ACCORDA [Suspect]
     Active Substance: CAPECITABINE
     Indication: RHEUMATOID ARTHRITIS
     Dosage: 500MG 2 TABS BID ORAL
     Route: 048
  2. LASIX [Concomitant]
     Active Substance: FUROSEMIDE
  3. OXYCODONE [Concomitant]
     Active Substance: OXYCODONE
  4. CAPECITABINE. [Suspect]
     Active Substance: CAPECITABINE
     Indication: RHEUMATOID ARTHRITIS
     Dosage: 150MG 1 TAB BID ORAL
     Route: 048
     Dates: start: 20171128
  5. MORPHINE [Concomitant]
     Active Substance: MORPHINE
  6. PEPCID [Concomitant]
     Active Substance: FAMOTIDINE
  7. LACTULOSE. [Concomitant]
     Active Substance: LACTULOSE
  8. SPIRONOLACTONE. [Concomitant]
     Active Substance: SPIRONOLACTONE

REACTIONS (1)
  - Cerebrovascular accident [None]
